FAERS Safety Report 20783084 (Version 1)
Quarter: 2022Q2

REPORT INFORMATION
  Report Type: Spontaneous
  Country: PL (occurrence: PL)
  Receive Date: 20220504
  Receipt Date: 20220504
  Transmission Date: 20220721
  Serious: Yes (Death)
  Sender: FDA-Public Use
  Company Number: PL-PFIZER INC-2008082977

PATIENT
  Sex: Male

DRUGS (5)
  1. DOXEPIN [Suspect]
     Active Substance: DOXEPIN
     Dosage: UNK
  2. HYDROXYZINE HYDROCHLORIDE [Suspect]
     Active Substance: HYDROXYZINE HYDROCHLORIDE
  3. NITRAZEPAM [Suspect]
     Active Substance: NITRAZEPAM
  4. ESTAZOLAM [Suspect]
     Active Substance: ESTAZOLAM
  5. ZOLPIDEM TARTRATE [Suspect]
     Active Substance: ZOLPIDEM TARTRATE

REACTIONS (1)
  - Altered state of consciousness [Fatal]
